FAERS Safety Report 18442960 (Version 1)
Quarter: 2020Q4

REPORT INFORMATION
  Report Type: Report from Study
  Country: None (occurrence: US)
  Receive Date: 20201030
  Receipt Date: 20201030
  Transmission Date: 20210114
  Serious: Yes (Hospitalization, Other)
  Sender: FDA-Public Use
  Company Number: US-ABBVIE-20K-163-3621222-00

PATIENT
  Age: 56 Year
  Sex: Female

DRUGS (1)
  1. HUMIRA [Suspect]
     Active Substance: ADALIMUMAB
     Indication: RHEUMATOID ARTHRITIS
     Dosage: CITRATE FREE
     Route: 058
     Dates: end: 20201008

REACTIONS (4)
  - Pyrexia [Not Recovered/Not Resolved]
  - Dyspnoea [Unknown]
  - Cardiac disorder [Unknown]
  - Pulmonary artery thrombosis [Recovering/Resolving]

NARRATIVE: CASE EVENT DATE: 20201012
